FAERS Safety Report 7072084-6 (Version None)
Quarter: 2010Q4

REPORT INFORMATION
  Report Type: 
  Country: None (occurrence: None)
  Receive Date: 20101029
  Receipt Date: 20101019
  Transmission Date: 20110411
  Serious: Yes (Hospitalization)
  Sender: FDA-Public Use
  Company Number: US-NOVOPROD-316843

PATIENT
  Age: 49 Year
  Sex: Female
  Weight: 146.94 kg

DRUGS (14)
  1. VICTOZA [Suspect]
     Indication: TYPE 2 DIABETES MELLITUS
     Dosage: 0.6 MG, QD
     Route: 058
     Dates: start: 20100831
  2. VICTOZA [Suspect]
     Dosage: 1.2 MG, QD
     Route: 058
     Dates: start: 20100901, end: 20100901
  3. VICTOZA [Suspect]
     Dosage: 1.8 MG, QD
     Route: 058
     Dates: end: 20100921
  4. VICTOZA [Suspect]
     Dosage: 1.2 MG, QD
     Route: 058
     Dates: start: 20100921, end: 20101011
  5. METFORMIN [Concomitant]
     Indication: TYPE 2 DIABETES MELLITUS
     Dosage: 1000 MG, BID
     Route: 048
     Dates: start: 20100831
  6. ACTOS [Concomitant]
     Indication: TYPE 2 DIABETES MELLITUS
     Dosage: 15 MG, QD
     Route: 048
     Dates: start: 20100831
  7. LISINOPRIL + HIDROCLOROTIAZIDA [Concomitant]
     Indication: HYPERTENSION
     Dosage: 20/25 MG, QD
     Route: 048
  8. AMLODIPINE [Concomitant]
     Indication: HYPERTENSION
     Dosage: 10 MG, QD
     Route: 048
  9. GEMFIBROZIL [Concomitant]
     Indication: HYPERLIPIDAEMIA
     Dosage: 600 MG, QD
     Route: 048
  10. TRAZODONE [Concomitant]
     Indication: BIPOLAR DISORDER
     Dosage: 150MG 2 TABS AT BEDTIME
     Route: 048
  11. LITHIUM CARBONATE [Concomitant]
     Indication: BIPOLAR DISORDER
     Dosage: 300MG, AM AND 600MG PM
     Route: 048
  12. SERTRALINE HYDROCHLORIDE [Concomitant]
     Indication: BIPOLAR DISORDER
     Dosage: 50 MG, QD
     Route: 048
  13. RISPERDAL [Concomitant]
     Indication: BIPOLAR DISORDER
     Dosage: 1 MG, BID
     Route: 048
  14. BENZTROPINE MESYLATE [Concomitant]
     Indication: BIPOLAR DISORDER
     Dosage: 0.5 MG, BID
     Route: 048

REACTIONS (2)
  - NAUSEA [None]
  - PANCREATITIS ACUTE [None]
